FAERS Safety Report 7271950-6 (Version None)
Quarter: 2011Q1

REPORT INFORMATION
  Report Type: 
  Country: None (occurrence: None)
  Receive Date: 20110203
  Receipt Date: 20110131
  Transmission Date: 20110831
  Serious: Yes (Other)
  Sender: FDA-Public Use
  Company Number: US-JNJFOC-20100809168

PATIENT
  Sex: Male
  Weight: 88.45 kg

DRUGS (2)
  1. SINGULAIR [Concomitant]
     Indication: SEASONAL ALLERGY
     Route: 048
  2. ULTRACET [Suspect]
     Indication: PAIN IN EXTREMITY
     Route: 048

REACTIONS (6)
  - MID-LIFE CRISIS [None]
  - DISSOCIATION [None]
  - ABNORMAL BEHAVIOUR [None]
  - MOOD SWINGS [None]
  - ADVERSE EVENT [None]
  - WEIGHT DECREASED [None]
